FAERS Safety Report 7562037-3 (Version None)
Quarter: 2011Q2

REPORT INFORMATION
  Report Type: 
  Country: None (occurrence: None)
  Receive Date: 20110622
  Receipt Date: 20081229
  Transmission Date: 20111010
  Serious: Yes (Death, Other)
  Sender: FDA-Public Use
  Company Number: PHHY2008DE37547

PATIENT
  Sex: Female
  Weight: 62 kg

DRUGS (8)
  1. FRUBIASE [Concomitant]
  2. ROCALTROL [Concomitant]
     Dosage: 25 UNK, QD
  3. INSULIN [Concomitant]
  4. SANDOSTATIN LAR [Suspect]
     Indication: PANCREATIC NEUROENDOCRINE TUMOUR
     Dosage: 20 MG, UNK
     Route: 030
     Dates: start: 20080201
  5. FUROSEMIDE [Concomitant]
  6. POTASSIUM [Concomitant]
     Dosage: UNK
  7. PANTOPRAZOLE SODIUM [Concomitant]
     Dosage: 40 ,1-0-0-1
  8. IBUPROFEN [Concomitant]

REACTIONS (5)
  - FLUID RETENTION [None]
  - DEATH [None]
  - CACHEXIA [None]
  - DYSPNOEA [None]
  - PAIN [None]
